FAERS Safety Report 7498847-0 (Version None)
Quarter: 2011Q2

REPORT INFORMATION
  Report Type: 
  Country: None (occurrence: None)
  Receive Date: 20110524
  Receipt Date: 20110511
  Transmission Date: 20111010
  Serious: Yes (Hospitalization)
  Sender: FDA-Public Use
  Company Number: US-JNJFOC-20110509077

PATIENT
  Sex: Male

DRUGS (1)
  1. TYLENOL WARMING COLD AND FLU SEVERE [Suspect]
     Indication: PRODUCT USED FOR UNKNOWN INDICATION
     Route: 048

REACTIONS (3)
  - ANALGESIC DRUG LEVEL INCREASED [None]
  - LIVER INJURY [None]
  - HAEMORRHAGE [None]
